FAERS Safety Report 5175225-0 (Version None)
Quarter: 2006Q4

REPORT INFORMATION
  Report Type: 
  Country: None (occurrence: None)
  Receive Date: 20061206
  Receipt Date: 20061123
  Transmission Date: 20070319
  Serious: Yes (Other)
  Sender: FDA-Public Use
  Company Number: SPV1-2006-01170

PATIENT
  Age: 63 Year
  Sex: Female

DRUGS (1)
  1. FOSRENOL [Suspect]
     Indication: HYPERPHOSPHATAEMIA
     Dosage: 750  MG, 3X/DAY:TID,ORAL
     Route: 048
     Dates: start: 20060929, end: 20061001

REACTIONS (9)
  - ABDOMINAL PAIN [None]
  - BRAIN CONTUSION [None]
  - FALL [None]
  - HEAD INJURY [None]
  - LOSS OF CONSCIOUSNESS [None]
  - NAUSEA [None]
  - SUBCUTANEOUS HAEMATOMA [None]
  - SYNCOPE [None]
  - VOMITING [None]
